FAERS Safety Report 8814711 (Version 3)
Quarter: 2012Q4

REPORT INFORMATION
  Report Type: 
  Country: US (occurrence: US)
  Receive Date: 20120928
  Receipt Date: 20121119
  Transmission Date: 20130627
  Serious: Yes (Death, Hospitalization, Other)
  Sender: FDA-Public Use
  Company Number: US-009507513-1209USA009625

PATIENT

DRUGS (4)
  1. FOSAMAX [Suspect]
     Indication: OSTEOPENIA
     Dosage: 35 mg, qw
     Route: 048
     Dates: start: 200109, end: 2005
  2. FOSAMAX [Suspect]
     Indication: OSTEOPOROSIS
     Dosage: 70 mg, qw
     Route: 048
     Dates: start: 20011005, end: 20041112
  3. FOSAMAX PLUS D [Suspect]
     Indication: OSTEOPENIA
     Dosage: UNK, qw
     Route: 048
     Dates: start: 20070314, end: 20081121
  4. FOSAMAX PLUS D [Suspect]
     Indication: OSTEOPOROSIS

REACTIONS (38)
  - Spinal compression fracture [Unknown]
  - Vertebroplasty [Unknown]
  - Blood pressure increased [Unknown]
  - Lumbar vertebral fracture [Unknown]
  - Arthralgia [Unknown]
  - Anaemia postoperative [Unknown]
  - Rheumatoid arthritis [Unknown]
  - Raynaud^s phenomenon [Unknown]
  - Diarrhoea [Unknown]
  - Restless legs syndrome [Unknown]
  - Osteoarthritis [Unknown]
  - Polyneuropathy idiopathic progressive [Unknown]
  - Horner^s syndrome [Unknown]
  - Ataxia [Unknown]
  - Major depression [Unknown]
  - Leukocytoclastic vasculitis [Unknown]
  - Skin graft [Unknown]
  - Abdominal pain upper [Unknown]
  - Chest pain [Unknown]
  - Hiatus hernia [Unknown]
  - B-cell lymphoma [Unknown]
  - Biopsy mucosa abnormal [Unknown]
  - Oral infection [Unknown]
  - Dental caries [Unknown]
  - Dyspnoea [Unknown]
  - Drug administration error [Unknown]
  - Open reduction of fracture [Unknown]
  - Hypokalaemia [Unknown]
  - Rib fracture [Unknown]
  - Fall [Unknown]
  - Femur fracture [Recovering/Resolving]
  - Death [Fatal]
  - Osteonecrosis of jaw [Unknown]
  - Pubis fracture [Recovering/Resolving]
  - Foot fracture [Unknown]
  - Rib fracture [Unknown]
  - Off label use [Unknown]
  - Eructation [Unknown]
